FAERS Safety Report 6490513-3 (Version None)
Quarter: 2009Q4

REPORT INFORMATION
  Report Type: 
  Country: None (occurrence: None)
  Receive Date: 20091211
  Receipt Date: 20091204
  Transmission Date: 20100525
  Serious: Yes (Disabling, Other)
  Sender: FDA-Public Use
  Company Number: US-BAYER-200917363BCC

PATIENT
  Age: 76 Year
  Sex: Female
  Weight: 82 kg

DRUGS (6)
  1. ALEVE (CAPLET) [Suspect]
     Indication: PAIN IN EXTREMITY
     Dosage: UNIT DOSE: 220 MG
     Route: 048
     Dates: start: 20091101
  2. INSULIN [Concomitant]
     Route: 065
  3. LANTUS [Concomitant]
     Route: 065
  4. SYNTHROID [Concomitant]
     Route: 065
  5. TRI CORE [Concomitant]
     Route: 065
  6. JANUMET [Concomitant]
     Route: 065

REACTIONS (4)
  - ABASIA [None]
  - PAIN [None]
  - PRURITUS [None]
  - RASH [None]
